FAERS Safety Report 20768890 (Version 1)
Quarter: 2022Q2

REPORT INFORMATION
  Report Type: Spontaneous
  Country: US (occurrence: None)
  Receive Date: 20220428
  Receipt Date: 20220428
  Transmission Date: 20220720
  Serious: Yes (Disabling, Other)
  Sender: FDA-Public Use
  Company Number: None

PATIENT
  Age: 79 Year
  Sex: Female
  Weight: 58.5 kg

DRUGS (2)
  1. KEYTRUDA [Suspect]
     Active Substance: PEMBROLIZUMAB
     Indication: Malignant melanoma
     Route: 042
     Dates: end: 20211119
  2. Premarin 0.625 [Concomitant]

REACTIONS (7)
  - Urticaria [None]
  - Therapy non-responder [None]
  - Arthralgia [None]
  - Peripheral swelling [None]
  - Joint swelling [None]
  - Pruritus [None]
  - Product complaint [None]

NARRATIVE: CASE EVENT DATE: 20211119
